FAERS Safety Report 7022567-X (Version None)
Quarter: 2010Q3

REPORT INFORMATION
  Report Type: 
  Country: None (occurrence: None)
  Receive Date: 20100930
  Receipt Date: 20100922
  Transmission Date: 20110219
  Serious: Yes (Other)
  Sender: FDA-Public Use
  Company Number: FR-BAYER-201040681GPV

PATIENT
  Sex: Male

DRUGS (1)
  1. CIFLOX [Suspect]
     Indication: PRODUCT USED FOR UNKNOWN INDICATION

REACTIONS (7)
  - ECCHYMOSIS [None]
  - LIGAMENT DISORDER [None]
  - MUSCLE HAEMORRHAGE [None]
  - MUSCLE RUPTURE [None]
  - MUSCLE SWELLING [None]
  - MYALGIA [None]
  - TENDON DISORDER [None]
